FAERS Safety Report 18473590 (Version 1)
Quarter: 2020Q4

REPORT INFORMATION
  Report Type: Spontaneous
  Country: US (occurrence: US)
  Receive Date: 20201105
  Receipt Date: 20201105
  Transmission Date: 20210114
  Serious: Yes (Death)
  Sender: FDA-Public Use
  Company Number: None

PATIENT
  Age: 62 Year
  Sex: Male

DRUGS (2)
  1. COTELLIC [Suspect]
     Active Substance: COBIMETINIB
     Indication: MALIGNANT MELANOMA
     Dosage: FREQUENCY: 3 TABLETS DAILY
     Route: 048
     Dates: start: 20200914, end: 20201014
  2. ZELBORAF [Suspect]
     Active Substance: VEMURAFENIB
     Indication: MALIGNANT MELANOMA
     Dosage: FREQUENCY: : 4 TABLETS TWICE
     Route: 061
     Dates: start: 20200914, end: 20201014

REACTIONS (3)
  - Therapy interrupted [None]
  - Disease complication [None]
  - Malignant melanoma [None]

NARRATIVE: CASE EVENT DATE: 20201027
